FAERS Safety Report 6998088-7 (Version None)
Quarter: 2010Q3

REPORT INFORMATION
  Report Type: 
  Country: None (occurrence: None)
  Receive Date: 20100920
  Receipt Date: 20091026
  Transmission Date: 20110219
  Serious: Yes (Hospitalization)
  Sender: FDA-Public Use
  Company Number: US-ASTRAZENECA-2009UW12002

PATIENT
  Age: 43 Year
  Sex: Male
  Weight: 108.9 kg

DRUGS (2)
  1. SEROQUEL [Suspect]
     Indication: DEPRESSION
     Dosage: 300 MG TO 900 MG
     Route: 048
     Dates: start: 20051001, end: 20090101
  2. ZYPREXA [Concomitant]
     Dates: start: 20090201

REACTIONS (2)
  - MENTAL DISORDER [None]
  - TYPE 2 DIABETES MELLITUS [None]
